FAERS Safety Report 4738742-0 (Version None)
Quarter: 2005Q3

REPORT INFORMATION
  Report Type: 
  Country: None (occurrence: None)
  Receive Date: 20050804
  Receipt Date: 20050720
  Transmission Date: 20060218
  Serious: No
  Sender: FDA-Public Use
  Company Number: DE-SHR-04-021517

PATIENT
  Age: 33 Year
  Sex: Female

DRUGS (2)
  1. BETASERON [Suspect]
     Indication: MULTIPLE SCLEROSIS
     Dosage: EVERY 2D, SUBCUTANEOUS
     Route: 058
     Dates: start: 19991201
  2. VALETTE [Concomitant]

REACTIONS (5)
  - ACNE [None]
  - CARBUNCLE [None]
  - DISEASE RECURRENCE [None]
  - GROIN ABSCESS [None]
  - SUBCUTANEOUS ABSCESS [None]
